FAERS Safety Report 9470804 (Version 1)
Quarter: 2013Q3

REPORT INFORMATION
  Report Type: Spontaneous
  Country: US (occurrence: None)
  Receive Date: 20130820
  Receipt Date: 20130820
  Transmission Date: 20140515
  Serious: Yes (Disabling)
  Sender: FDA-Public Use
  Company Number: None

PATIENT
  Age: 48 None
  Sex: Male

DRUGS (9)
  1. LEVOXYL [Suspect]
     Indication: THYROID DISORDER
     Route: 048
     Dates: start: 20130307, end: 20130415
  2. LEVOXYL [Concomitant]
  3. METFORMIN [Concomitant]
  4. GLIMEPIRIDE [Concomitant]
  5. DIOVAN [Concomitant]
  6. GEMFIBROZIL [Concomitant]
  7. DILTIAZEM [Concomitant]
  8. VITAMIN D [Concomitant]
  9. INSULIN(INJECTABLE) [Concomitant]

REACTIONS (5)
  - Musculoskeletal pain [None]
  - Muscle tightness [None]
  - Movement disorder [None]
  - Joint crepitation [None]
  - Condition aggravated [None]
